FAERS Safety Report 5958101-2 (Version None)
Quarter: 2008Q4

REPORT INFORMATION
  Report Type: 
  Country: None (occurrence: None)
  Receive Date: 20081119
  Receipt Date: 20081110
  Transmission Date: 20090506
  Serious: Yes (Life-Threatening, Hospitalization, Disabling, Other)
  Sender: FDA-Public Use
  Company Number: B0546726A

PATIENT
  Age: 69 Year
  Sex: Female

DRUGS (1)
  1. ARIXTRA [Suspect]
     Indication: DRUG USE FOR UNKNOWN INDICATION
     Dosage: 7.5MG PER DAY
     Route: 058
     Dates: start: 20080601, end: 20080722

REACTIONS (5)
  - ABSCESS LIMB [None]
  - ESCHERICHIA INFECTION [None]
  - HAEMATOMA INFECTION [None]
  - PHLEBITIS [None]
  - SEPTIC SHOCK [None]
